FAERS Safety Report 24749564 (Version 2)
Quarter: 2024Q4

REPORT INFORMATION
  Report Type: Spontaneous
  Country: IT (occurrence: IT)
  Receive Date: 20241218
  Receipt Date: 20241224
  Transmission Date: 20250115
  Serious: Yes (Death, Other)
  Sender: GILEAD
  Company Number: IT-GILEAD-2024-0697360

PATIENT
  Sex: Male

DRUGS (2)
  1. YESCARTA [Suspect]
     Active Substance: AXICABTAGENE CILOLEUCEL
     Indication: Diffuse large B-cell lymphoma
     Dosage: UNK (3L)
     Route: 042
     Dates: start: 20230309, end: 20230309
  2. GLOFITAMAB GXBM [Concomitant]

REACTIONS (2)
  - Disease progression [Fatal]
  - Cytokine release syndrome [Unknown]
